FAERS Safety Report 6461282-8 (Version None)
Quarter: 2009Q4

REPORT INFORMATION
  Report Type: 
  Country: None (occurrence: None)
  Receive Date: 20091123
  Receipt Date: 20091109
  Transmission Date: 20100525
  Serious: Yes (Death, Hospitalization)
  Sender: FDA-Public Use
  Company Number: 2009AC000290

PATIENT
  Age: 53 Year
  Sex: Male

DRUGS (11)
  1. DIGOXIN [Suspect]
     Dosage: 0.125 MG; QD; PO
     Route: 048
     Dates: start: 20010801
  2. ACETAMINOPHEN AND HYDROCODONE BITARTRATE [Concomitant]
  3. WARFARIN SODIUM [Concomitant]
  4. FUROSEMIDE [Concomitant]
  5. CIPRO [Concomitant]
  6. BUSPAR [Concomitant]
  7. CADUET [Concomitant]
  8. INSULIN [Concomitant]
  9. COUMADIN [Concomitant]
  10. POTASSIUM [Concomitant]
  11. VICODIN [Concomitant]

REACTIONS (18)
  - ANKYLOSING SPONDYLITIS [None]
  - ARRHYTHMIA [None]
  - ARTERIOSCLEROSIS [None]
  - BACK PAIN [None]
  - CARDIAC FAILURE CONGESTIVE [None]
  - CARDIO-RESPIRATORY ARREST [None]
  - CEREBROVASCULAR ACCIDENT [None]
  - ECONOMIC PROBLEM [None]
  - FALL [None]
  - LOSS OF CONSCIOUSNESS [None]
  - MULTIPLE INJURIES [None]
  - MYOCARDIAL INFARCTION [None]
  - PAIN [None]
  - PLEURAL EFFUSION [None]
  - PULMONARY EMBOLISM [None]
  - PULSE ABSENT [None]
  - UNEVALUABLE EVENT [None]
  - VENTRICULAR FIBRILLATION [None]
